FAERS Safety Report 4316331-X (Version None)
Quarter: 2004Q1

REPORT INFORMATION
  Report Type: 
  Country: None (occurrence: None)
  Receive Date: 20040310
  Receipt Date: 20030917
  Transmission Date: 20041129
  Serious: Yes (Other)
  Sender: FDA-Public Use
  Company Number: HQWYE805022SEP03

PATIENT
  Age: 59 Year
  Sex: Female
  Weight: 68.55 kg

DRUGS (4)
  1. PROTONIX [Suspect]
     Indication: GASTROOESOPHAGEAL REFLUX DISEASE
     Dosage: 40 MG 1X PER 1 DAY ORAL
     Route: 048
     Dates: start: 20030823, end: 20030913
  2. ACCUPRIL [Concomitant]
  3. DIOVAN HCT [Concomitant]
  4. ESTRADIOL [Concomitant]

REACTIONS (4)
  - BURNING SENSATION [None]
  - GLOSSODYNIA [None]
  - LIP PAIN [None]
  - TONGUE DISCOLOURATION [None]
